FAERS Safety Report 8389002-0 (Version None)
Quarter: 2012Q2

REPORT INFORMATION
  Report Type: 
  Country: None (occurrence: None)
  Receive Date: 20120528
  Receipt Date: 20120525
  Transmission Date: 20120825
  Serious: Yes (Other)
  Sender: FDA-Public Use
  Company Number: US-PFIZER INC-2012127264

PATIENT
  Sex: Female
  Weight: 73.5 kg

DRUGS (7)
  1. CELEBREX [Suspect]
     Indication: RHEUMATOID ARTHRITIS
     Dosage: 200 MG, 3X/DAY
     Route: 048
  2. CELEBREX [Suspect]
     Dosage: 200 MG, 1X/DAY
  3. METHOTREXATE [Concomitant]
     Indication: RHEUMATOID ARTHRITIS
     Dosage: UNK
  4. LANSOPRAZOLE [Concomitant]
     Indication: ABDOMINAL PAIN UPPER
     Dosage: UNK
  5. PAXIL CR [Concomitant]
     Indication: PANIC ATTACK
     Dosage: UNK
  6. PAXIL CR [Concomitant]
     Indication: DEPRESSION
  7. ALPRAZOLAM [Concomitant]
     Indication: INSOMNIA
     Dosage: UNK

REACTIONS (1)
  - CEREBROVASCULAR ACCIDENT [None]
